FAERS Safety Report 12913316 (Version 1)
Quarter: 2016Q4

REPORT INFORMATION
  Report Type: Spontaneous
  Country: US (occurrence: US)
  Receive Date: 20161104
  Receipt Date: 20161104
  Transmission Date: 20170207
  Serious: No
  Sender: FDA-Public Use
  Company Number: ALCN2016US007450

PATIENT
  Age: 3 Year
  Sex: Female

DRUGS (1)
  1. SIMBRINZA [Suspect]
     Active Substance: BRIMONIDINE TARTRATE\BRINZOLAMIDE
     Indication: GLAUCOMA
     Dosage: 1 GTT, BID
     Route: 047
     Dates: start: 201609

REACTIONS (2)
  - Medication residue present [Recovered/Resolved]
  - Eye irritation [Recovered/Resolved]

NARRATIVE: CASE EVENT DATE: 201609
